FAERS Safety Report 9064521 (Version 2)
Quarter: 2013Q1

REPORT INFORMATION
  Report Type: Report from Study
  Country: AU (occurrence: AU)
  Receive Date: 20130128
  Receipt Date: 20130222
  Transmission Date: 20140127
  Serious: Yes (Hospitalization, Disabling, Other)
  Sender: FDA-Public Use
  Company Number: AU-VERTEX PHARMACEUTICALS INC.-2013-001203

PATIENT
  Sex: Female
  Weight: 63 kg

DRUGS (12)
  1. VX-950 (TELAPREVIR) [Suspect]
     Indication: CHRONIC HEPATITIS C
     Dosage: 750 MG, TID
     Dates: start: 201211, end: 20121230
  2. PEGINTERFERON ALFA 2A [Concomitant]
     Indication: CHRONIC HEPATITIS C
     Dosage: DOSAGE FORM: UNSPECIFIED
     Route: 058
     Dates: start: 201211, end: 20121222
  3. RIBAVIRIN [Concomitant]
     Indication: CHRONIC HEPATITIS C
     Dosage: 400 MG, QD
     Dates: start: 20121220, end: 20121222
  4. RIBAVIRIN [Concomitant]
     Dosage: 1000 MG, QD
     Dates: start: 201211, end: 20121220
  5. GABAPENTIN [Concomitant]
     Indication: NEURALGIA
     Dosage: 800 MG MANE
  6. GABAPENTIN [Concomitant]
     Dosage: 400 MG MIDI/EVENING/NIGHT
  7. GABAPENTIN [Concomitant]
  8. GABAPENTIN [Concomitant]
  9. GABAPENTIN [Concomitant]
     Dosage: 400 MG MIDI/EVENING/NIGHT
  10. GABAPENTIN [Concomitant]
     Dosage: 800 MG MANE
  11. PANADOL OSTEO [Concomitant]
     Indication: PRODUCT USED FOR UNKNOWN INDICATION
     Dosage: UNK, PRN
     Route: 065
  12. PANADOL OSTEO [Concomitant]
     Dosage: DOSAGE FORM: UNSPECIFIED

REACTIONS (4)
  - Lower respiratory tract infection [Recovered/Resolved]
  - Neuropathy peripheral [Recovered/Resolved]
  - Mobility decreased [Recovered/Resolved]
  - Anaemia [Recovered/Resolved]
